FAERS Safety Report 6430829-X (Version None)
Quarter: 2009Q4

REPORT INFORMATION
  Report Type: 
  Country: None (occurrence: None)
  Receive Date: 20091105
  Receipt Date: 20091105
  Transmission Date: 20100525
  Serious: No
  Sender: FDA-Public Use
  Company Number: None

PATIENT
  Age: 60 Year
  Sex: Female
  Weight: 100.6985 kg

DRUGS (2)
  1. ACTONEL [Suspect]
     Indication: OSTEOPENIA
     Dosage: 150 MG. ONCE A MONTH
     Dates: start: 20030101, end: 20090101
  2. ACTONEL [Suspect]
     Dosage: 30 MG
     Dates: start: 20030101, end: 20090101

REACTIONS (1)
  - BONE DENSITY DECREASED [None]
